FAERS Safety Report 15283157 (Version 1)
Quarter: 2018Q4

REPORT INFORMATION
  Report Type: Spontaneous
  Country: ZA (occurrence: ZA)
  Receive Date: 20180816
  Receipt Date: 20180816
  Transmission Date: 20190204
  Serious: Yes (Death)
  Sender: FDA-Public Use
  Company Number: ZA-DRREDDYS-SAF/SAF/18/0100920

PATIENT
  Age: 64 Year
  Sex: Female

DRUGS (14)
  1. TARGINACT [Suspect]
     Active Substance: NALOXONE HYDROCHLORIDE\OXYCODONE HYDROCHLORIDE
     Indication: PRODUCT USED FOR UNKNOWN INDICATION
     Route: 048
     Dates: end: 20180217
  2. OXYNORM [Suspect]
     Active Substance: OXYCODONE HYDROCHLORIDE
     Indication: PRODUCT USED FOR UNKNOWN INDICATION
     Route: 048
     Dates: end: 20180217
  3. EPILIM [Suspect]
     Active Substance: VALPROATE SODIUM
     Indication: EPILEPSY
     Route: 048
     Dates: end: 20180217
  4. MEDROL [Suspect]
     Active Substance: METHYLPREDNISOLONE
     Indication: PRODUCT USED FOR UNKNOWN INDICATION
     Route: 048
     Dates: end: 20180217
  5. OLEXAR [Suspect]
     Active Substance: OLANZAPINE
     Indication: DEPRESSION
     Route: 048
     Dates: end: 20180217
  6. ADCO-ZOLPIDEM [Suspect]
     Active Substance: ZOLPIDEM TARTRATE
     Indication: INSOMNIA
     Route: 048
     Dates: end: 20180217
  7. OMEZ [Suspect]
     Active Substance: OMEPRAZOLE
     Indication: ULCER
     Route: 048
     Dates: end: 20180217
  8. CYMGEN [Suspect]
     Active Substance: DULOXETINE HYDROCHLORIDE
     Indication: DEPRESSION
     Route: 048
     Dates: end: 20180217
  9. CLOPAMON [Suspect]
     Active Substance: METOCLOPRAMIDE
     Indication: PRODUCT USED FOR UNKNOWN INDICATION
     Route: 048
     Dates: end: 20180217
  10. ATIVAN [Suspect]
     Active Substance: LORAZEPAM
     Indication: STRESS
     Route: 048
     Dates: end: 20180217
  11. PURESIS [Suspect]
     Active Substance: FUROSEMIDE
     Indication: DIURETIC THERAPY
     Route: 048
     Dates: end: 20180217
  12. UTIN (NALIDIXIC ACID) [Suspect]
     Active Substance: NALIDIXIC ACID
     Indication: PRODUCT USED FOR UNKNOWN INDICATION
     Route: 048
     Dates: end: 20180217
  13. MENACAL7 [Suspect]
     Active Substance: CALCIUM\MENAQUINONE 6\VITAMIN D
     Indication: PRODUCT USED FOR UNKNOWN INDICATION
     Route: 048
     Dates: end: 20180217
  14. TRAMAZAC CO [Suspect]
     Active Substance: ACETAMINOPHEN\TRAMADOL
     Indication: PAIN
     Route: 048
     Dates: end: 20180217

REACTIONS (1)
  - Death [Fatal]

NARRATIVE: CASE EVENT DATE: 20180217
